FAERS Safety Report 21757559 (Version 2)
Quarter: 2022Q4

REPORT INFORMATION
  Report Type: Spontaneous
  Country: US (occurrence: US)
  Receive Date: 20221221
  Receipt Date: 20221228
  Transmission Date: 20230112
  Serious: No
  Sender: FDA-Public Use
  Company Number: US-SA-SAC20221219000298

PATIENT
  Sex: Male
  Weight: 101 kg

DRUGS (20)
  1. DUPIXENT [Suspect]
     Active Substance: DUPILUMAB
     Indication: Dermatitis atopic
     Dosage: 300 MG/2 ML QOW
     Route: 058
  2. PARAFFIN [Concomitant]
     Active Substance: PARAFFIN
  3. GOLD BOND ORIGINAL STRENGTH POWDER [Concomitant]
     Active Substance: MENTHOL\ZINC OXIDE
  4. XIIDRA [Concomitant]
     Active Substance: LIFITEGRAST
  5. CRESTOR [Concomitant]
     Active Substance: ROSUVASTATIN CALCIUM
  6. XARELTO [Concomitant]
     Active Substance: RIVAROXABAN
  7. METFORMIN HYDROCHLORIDE [Concomitant]
     Active Substance: METFORMIN HYDROCHLORIDE
  8. LATANOPROST [Concomitant]
     Active Substance: LATANOPROST
  9. GLUCOSAMINE [Concomitant]
     Active Substance: GLUCOSAMINE
  10. AMARYL [Concomitant]
     Active Substance: GLIMEPIRIDE
  11. TRELEGY ELLIPTA [Concomitant]
     Active Substance: FLUTICASONE FUROATE\UMECLIDINIUM BROMIDE\VILANTEROL TRIFENATATE
  12. CHLORTHALIDONE [Concomitant]
     Active Substance: CHLORTHALIDONE
  13. ZETIA [Concomitant]
     Active Substance: EZETIMIBE
  14. FENOFIBRATE [Concomitant]
     Active Substance: FENOFIBRATE
  15. LASIX [Concomitant]
     Active Substance: FUROSEMIDE
  16. ATENOLOL [Concomitant]
     Active Substance: ATENOLOL
  17. AMLODIPINE;ATORVASTATIN [Concomitant]
  18. FISH OIL [Concomitant]
     Active Substance: FISH OIL
  19. FLUCELVAX QUAD [Concomitant]
     Indication: Immunisation
  20. PFIZER-BIONTECH COVID-19 VACCINE [Concomitant]
     Active Substance: TOZINAMERAN
     Indication: Immunisation

REACTIONS (5)
  - Arthritis [Not Recovered/Not Resolved]
  - Pain [Not Recovered/Not Resolved]
  - Psoriasis [Not Recovered/Not Resolved]
  - Skin weeping [Not Recovered/Not Resolved]
  - Joint swelling [Unknown]
